FAERS Safety Report 18960347 (Version 1)
Quarter: 2021Q1

REPORT INFORMATION
  Report Type: Report from Study
  Country: ZA (occurrence: ZA)
  Receive Date: 20210302
  Receipt Date: 20210302
  Transmission Date: 20210420
  Serious: Yes (Death)
  Sender: FDA-Public Use
  Company Number: ZA-ASTRAZENECA-2021A092478

PATIENT
  Age: 24875 Day
  Sex: Female

DRUGS (6)
  1. BILOCOR [Concomitant]
     Active Substance: BISOPROLOL FUMARATE
     Route: 048
  2. PANTOCID [Concomitant]
     Route: 048
  3. CO?ZOMEVEK [Concomitant]
     Active Substance: HYDROCHLOROTHIAZIDE\VALSARTAN
     Dosage: 160/12.5MG, UNKNWON
     Route: 048
  4. NEULIN SA [Concomitant]
     Active Substance: THEOPHYLLINE
     Route: 048
  5. SYMBICORD TURBUHALER [Suspect]
     Active Substance: BUDESONIDE\FORMOTEROL FUMARATE DIHYDRATE
     Indication: ASTHMA
     Dosage: 320UG/INHAL DAILY
     Route: 055
  6. AMLOC [Concomitant]
     Route: 048

REACTIONS (1)
  - Death [Fatal]

NARRATIVE: CASE EVENT DATE: 20210210
